FAERS Safety Report 4899998-7 (Version None)
Quarter: 2006Q1

REPORT INFORMATION
  Report Type: 
  Country: None (occurrence: None)
  Receive Date: 20060203
  Receipt Date: 20060125
  Transmission Date: 20060701
  Serious: Yes (Other)
  Sender: FDA-Public Use
  Company Number: PHBS2006JP01559

PATIENT
  Age: 67 Year
  Sex: Female

DRUGS (2)
  1. PREDNISOLONE [Suspect]
     Indication: PARANEOPLASTIC SYNDROME
     Route: 048
  2. NEORAL [Suspect]
     Indication: PARANEOPLASTIC SYNDROME
     Route: 048

REACTIONS (2)
  - PULMONARY ARTERY THROMBOSIS [None]
  - VASCULAR INSUFFICIENCY [None]
